FAERS Safety Report 6108596-9 (Version None)
Quarter: 2009Q1

REPORT INFORMATION
  Report Type: 
  Country: None (occurrence: None)
  Receive Date: 20090305
  Receipt Date: 20090302
  Transmission Date: 20090719
  Serious: Yes (Life-Threatening, Hospitalization)
  Sender: FDA-Public Use
  Company Number: GXKR2009DE02497

PATIENT
  Age: 70 Year
  Sex: Female
  Weight: 94 kg

DRUGS (14)
  1. ASPIRIN [Suspect]
     Indication: HEADACHE
     Dosage: 500 MG, 3 IN DAY, ORAL
     Route: 048
     Dates: start: 20081010, end: 20081011
  2. ENOXAPARIN SODIUM [Suspect]
     Indication: OSTEOARTHRITIS
     Dosage: 60 MG/DAILY, SUBCUTANEOUS
     Route: 058
     Dates: start: 20080909, end: 20081006
  3. ARCOXIA   (ETORICOXIB) FILM-COATED TABLET [Suspect]
     Indication: OSTEOARTHRITIS
     Dosage: 60 MG, 2 IN DAY, ORAL
     Route: 048
     Dates: start: 20080101, end: 20081011
  4. PAROXETINE HYDROCHLORIDE [Suspect]
     Indication: OSTEOARTHRITIS
     Dosage: 60 MG, 2 IN DAY, ORAL
     Route: 048
     Dates: start: 20080101, end: 20081011
  5. VALORON N      (NALOXONE HYDROCHLORIDE, TILIDINE PHOSPHATE) [Concomitant]
  6. SIMVASTATIN [Concomitant]
  7. MIRTAZAPINE [Concomitant]
  8. DIPYRONE TAB [Concomitant]
  9. HYDROCHLOROTHIAZIDE [Concomitant]
  10. BISOHEXAL (BISOPROLOL HEMIFUMARATE) [Concomitant]
  11. BERLTHYROX (LEVOTHYROXINE SODIUM) [Concomitant]
  12. ATACAND [Concomitant]
  13. AMLODIPINE [Concomitant]
  14. ALLOPURINOL [Concomitant]

REACTIONS (2)
  - DRUG INTERACTION [None]
  - GASTROINTESTINAL HAEMORRHAGE [None]
